FAERS Safety Report 4470895-4 (Version None)
Quarter: 2004Q4

REPORT INFORMATION
  Report Type: 
  Country: None (occurrence: None)
  Receive Date: 20041011
  Receipt Date: 20040929
  Transmission Date: 20050328
  Serious: Yes (Disabling)
  Sender: FDA-Public Use
  Company Number: CH-AMGEN-UK093750

PATIENT
  Sex: Female
  Weight: 56 kg

DRUGS (2)
  1. NEULASTA [Suspect]
     Indication: NEUTROPENIA
     Route: 058
     Dates: start: 20040805
  2. NEUPOGEN [Suspect]
     Indication: NEUTROPENIA
     Route: 065

REACTIONS (1)
  - BACK PAIN [None]
